FAERS Safety Report 25384600 (Version 1)
Quarter: 2025Q2

REPORT INFORMATION
  Report Type: Spontaneous
  Country: JP (occurrence: JP)
  Receive Date: 20250602
  Receipt Date: 20250602
  Transmission Date: 20250716
  Serious: Yes (Other)
  Sender: Phathom Pharmaceuticals
  Company Number: JP-PHATHOM PHARMACEUTICALS INC.-2025PHT01341

PATIENT
  Age: 8 Decade
  Sex: Female
  Weight: 46 kg

DRUGS (15)
  1. VONOPRAZAN FUMARATE [Suspect]
     Active Substance: VONOPRAZAN FUMARATE
     Indication: Product used for unknown indication
     Route: 048
     Dates: end: 20210315
  2. VONOPRAZAN FUMARATE [Suspect]
     Active Substance: VONOPRAZAN FUMARATE
     Route: 048
     Dates: start: 20210408
  3. SAMSCA [Suspect]
     Active Substance: TOLVAPTAN
     Indication: Cardiac failure acute
     Dosage: 3.75 MILLIGRAM, QD
     Route: 048
     Dates: start: 20210309, end: 20210314
  4. ASCORBIC ACID\ASPIRIN [Suspect]
     Active Substance: ASCORBIC ACID\ASPIRIN
     Indication: Product used for unknown indication
     Route: 048
     Dates: start: 20210304
  5. PRASUGREL HYDROCHLORIDE [Suspect]
     Active Substance: PRASUGREL HYDROCHLORIDE
     Indication: Product used for unknown indication
     Route: 048
     Dates: start: 20210304
  6. CEFTRIAXONE [Suspect]
     Active Substance: CEFTRIAXONE
     Indication: Pneumonia
     Route: 042
     Dates: start: 20210312, end: 20210314
  7. HEPARIN [Suspect]
     Active Substance: HEPARIN SODIUM
     Indication: Acute myocardial infarction
     Route: 042
     Dates: start: 20210304, end: 20210306
  8. CARPERITIDE [Concomitant]
     Active Substance: CARPERITIDE
     Dates: start: 20210304
  9. LINAGLIPTIN [Concomitant]
     Active Substance: LINAGLIPTIN
     Dates: end: 20210315
  10. VOGLIBOSE [Concomitant]
     Active Substance: VOGLIBOSE
     Dates: end: 20210315
  11. PITAVASTATIN CALCIUM [Concomitant]
     Active Substance: PITAVASTATIN CALCIUM
     Dates: end: 20210315
  12. FEBUXOSTAT [Concomitant]
     Active Substance: FEBUXOSTAT
     Dates: end: 20210315
  13. FUROSEMIDE SODIUM [Concomitant]
     Active Substance: FUROSEMIDE SODIUM
     Dates: end: 20210315
  14. POLAPREZINC [Concomitant]
     Active Substance: POLAPREZINC
     Dates: end: 20210315
  15. BISOPROLOL FUMARATE [Concomitant]
     Active Substance: BISOPROLOL FUMARATE

REACTIONS (4)
  - Pyrexia [Recovered/Resolved]
  - Disseminated intravascular coagulation [Unknown]
  - Platelet count decreased [Recovering/Resolving]
  - Hepatic function abnormal [Recovered/Resolved]

NARRATIVE: CASE EVENT DATE: 20210314
